FAERS Safety Report 15882520 (Version 3)
Quarter: 2020Q3

REPORT INFORMATION
  Report Type: Spontaneous
  Country: ES (occurrence: ES)
  Receive Date: 20190129
  Receipt Date: 20200731
  Transmission Date: 20201102
  Serious: Yes (Hospitalization, Other)
  Sender: FDA-Public Use
  Company Number: ES-ALEXION PHARMACEUTICALS INC.-A201901140

PATIENT
  Age: 54 Year
  Sex: Male
  Weight: 75 kg

DRUGS (3)
  1. SOLIRIS [Suspect]
     Active Substance: ECULIZUMAB
     Indication: PAROXYSMAL NOCTURNAL HAEMOGLOBINURIA
     Dosage: UNK, QW
     Route: 065
  2. SOLIRIS [Suspect]
     Active Substance: ECULIZUMAB
     Dosage: UNK, Q2W
     Route: 065
  3. SOLIRIS [Suspect]
     Active Substance: ECULIZUMAB
     Dosage: 900 MG, QW
     Route: 065

REACTIONS (17)
  - Liver disorder [Not Recovered/Not Resolved]
  - Intravascular haemolysis [Recovered/Resolved]
  - Drug ineffective [Unknown]
  - Anaemia [Unknown]
  - Budd-Chiari syndrome [Unknown]
  - Haemoglobinuria [Unknown]
  - Hepatic artery thrombosis [Unknown]
  - Haemolysis [Recovering/Resolving]
  - Bacterial infection [Unknown]
  - Portal hypertension [Unknown]
  - Biliary tract disorder [Not Recovered/Not Resolved]
  - Disease complication [Not Recovered/Not Resolved]
  - Thrombosis [Unknown]
  - Bile duct stenosis [Unknown]
  - Blood lactate dehydrogenase increased [Unknown]
  - Post procedural complication [Not Recovered/Not Resolved]
  - Cholestasis [Unknown]

NARRATIVE: CASE EVENT DATE: 201910
